FAERS Safety Report 4298722-9 (Version None)
Quarter: 2004Q1

REPORT INFORMATION
  Report Type: 
  Country: None (occurrence: None)
  Receive Date: 20040126
  Receipt Date: 20031029
  Transmission Date: 20041129
  Serious: Yes (Other)
  Sender: FDA-Public Use
  Company Number: USA031050454

PATIENT
  Age: 6 Year
  Sex: Male
  Weight: 36 kg

DRUGS (1)
  1. STRATTERA [Suspect]
     Indication: ATTENTION DEFICIT/HYPERACTIVITY DISORDER
     Dosage: 40 MG/DAY
     Dates: start: 20030505, end: 20030903

REACTIONS (4)
  - DYSPEPSIA [None]
  - PHARYNGOLARYNGEAL PAIN [None]
  - PYREXIA [None]
  - TACHYCARDIA [None]
